FAERS Safety Report 5193551-6 (Version None)
Quarter: 2006Q4

REPORT INFORMATION
  Report Type: 
  Country: None (occurrence: None)
  Receive Date: 20061228
  Receipt Date: 20060803
  Transmission Date: 20070319
  Serious: No
  Sender: FDA-Public Use
  Company Number: US-GLAXOSMITHKLINE-A0615079A

PATIENT
  Age: 62 Year
  Sex: Female

DRUGS (4)
  1. FLONASE [Suspect]
     Dosage: 2PUFF PER DAY
     Dates: start: 20060701, end: 20060701
  2. VASOTEC [Concomitant]
  3. NORVASC [Concomitant]
  4. LASIX [Concomitant]

REACTIONS (2)
  - PRURITUS [None]
  - RASH [None]
